FAERS Safety Report 9098038 (Version 2)
Quarter: 2013Q1

REPORT INFORMATION
  Report Type: Spontaneous
  Country: US (occurrence: US)
  Receive Date: 20130212
  Receipt Date: 20130326
  Transmission Date: 20140127
  Serious: No
  Sender: FDA-Public Use
  Company Number: US-B.I. PHARMACEUTICALS,INC./RIDGEFIELD-2013-BI-03717BP

PATIENT
  Sex: Female
  Weight: 54 kg

DRUGS (10)
  1. MICARDIS [Suspect]
     Indication: HYPERTENSION
     Dosage: 80 MG
     Route: 048
     Dates: start: 201003, end: 201302
  2. METOPROLOL TARTRATE [Concomitant]
     Indication: HYPERTENSION
     Route: 048
  3. HYDROCHLOROTHIAZIDE [Concomitant]
     Indication: HYPERTENSION
     Dosage: 12.5 MG
     Route: 048
  4. FEMARA [Concomitant]
     Indication: BREAST CANCER
     Dosage: 2.5 MG
     Route: 048
  5. VENLAFAXINE [Concomitant]
     Indication: ANXIETY
     Dosage: 75 MG
     Route: 048
  6. LIPITOR [Concomitant]
     Dosage: 20 MG
     Route: 048
  7. EFFEXOR XR [Concomitant]
     Dosage: 75 MG
  8. LOSARTAN [Concomitant]
     Dosage: 100 MG
  9. PLAVIX [Concomitant]
     Dosage: 75 MG
  10. VITAMIN D [Concomitant]
     Dosage: 1000 U

REACTIONS (3)
  - Dysphonia [Not Recovered/Not Resolved]
  - Alopecia [Not Recovered/Not Resolved]
  - Laryngitis [Unknown]
